FAERS Safety Report 9521144 (Version 1)
Quarter: 2013Q1

REPORT INFORMATION
  Report Type: Spontaneous
  Country: US (occurrence: None)
  Receive Date: 20130305
  Receipt Date: 20130305
  Transmission Date: 20140127
  Serious: Yes (Life-Threatening, Other)
  Sender: FDA-Public Use
  Company Number: 163-21880-12073058

PATIENT
  Age: 61 Year
  Sex: Male

DRUGS (19)
  1. REVLIMID [Suspect]
     Indication: PLASMA CELL MYELOMA
     Dosage: 21 IN 28 D
     Route: 048
     Dates: start: 200710, end: 200712
  2. GABAPENTIN (GABAPENTIN) [Concomitant]
  3. POTASSIUM CHLORIDE (POTASSIUM CHLORIDE) [Concomitant]
  4. DEXAMETHASONE (DEXAMETHASONE) [Concomitant]
  5. VITAMIN A (RETINOL) [Concomitant]
  6. OMEGA-3 FATTY ACIDS (OMEGA-3 FATTY ACIDS) [Concomitant]
  7. CALCIUM CARBONATE WITH VITAMIN D3 (LEKOVIT CA) [Concomitant]
  8. PV W/O CAL/FERROUS FUMARATE/FA (CALCIUM LACTATE W/FERROUS FUMARATE) [Concomitant]
  9. ASCORBIC ACID (ASCORBIC ACID) [Concomitant]
  10. CYANOCOBALAMIN (CYANOCOBALAMIN) [Concomitant]
  11. FLOMAX (TAMSULOSIN HYDROCHLORIDE) [Concomitant]
  12. STOOL SOFTENERS (DOCUSATE SODIUM) [Concomitant]
  13. VITAMIN B6 (PYRIDOXINE HYDROCHLORIDE) [Concomitant]
  14. MULTIVITAMIN (MULTIVITAMINS) [Concomitant]
  15. SAW PALMETTO (SERENOA REPENS) [Concomitant]
  16. ASPIRIN (ACETYLSALICYLIC ACID) [Concomitant]
  17. PROTONIX [Concomitant]
  18. CALCIUM PLUS D (LEKOVIT CA) [Concomitant]
  19. VITAMIN C [Concomitant]

REACTIONS (4)
  - Deep vein thrombosis [None]
  - Neutropenia [None]
  - Blood immunoglobulin M increased [None]
  - Drug ineffective [None]
